FAERS Safety Report 17902408 (Version 1)
Quarter: 2020Q2

REPORT INFORMATION
  Report Type: Spontaneous
  Country: FR (occurrence: FR)
  Receive Date: 20200617
  Receipt Date: 20200617
  Transmission Date: 20200714
  Serious: Yes (Other)
  Sender: FDA-Public Use
  Company Number: FR-SUN PHARMACEUTICAL INDUSTRIES LTD-2020RR-250434

PATIENT
  Age: 58 Year

DRUGS (1)
  1. TEMOZOLOMIDE. [Suspect]
     Active Substance: TEMOZOLOMIDE
     Indication: GLIOBLASTOMA MULTIFORME
     Dosage: 125 MILLIGRAM/SQ. METER
     Route: 065

REACTIONS (3)
  - Toxicity to various agents [Unknown]
  - Therapy partial responder [Unknown]
  - Disease recurrence [Unknown]
